FAERS Safety Report 4500233-X (Version None)
Quarter: 2004Q4

REPORT INFORMATION
  Report Type: 
  Country: None (occurrence: None)
  Receive Date: 20041109
  Receipt Date: 20041026
  Transmission Date: 20050328
  Serious: No
  Sender: FDA-Public Use
  Company Number: CART-10380

PATIENT
  Age: 16 Year
  Sex: Male

DRUGS (1)
  1. CARTICEL [Suspect]
     Indication: ARTHROPATHY
     Dosage: 1 NA ONCE IS
     Dates: start: 20030708, end: 20030708

REACTIONS (5)
  - ARTHRALGIA [None]
  - ARTHROSCOPY ABNORMAL [None]
  - GRAFT COMPLICATION [None]
  - JOINT SWELLING [None]
  - PAIN [None]
